FAERS Safety Report 10393908 (Version 1)
Quarter: 2014Q3

REPORT INFORMATION
  Report Type: Spontaneous
  Country: US (occurrence: US)
  Receive Date: 20140819
  Receipt Date: 20140819
  Transmission Date: 20150326
  Serious: No
  Sender: FDA-Public Use
  Company Number: US-ASTELLAS-2013US012402

PATIENT
  Age: 43 Year
  Sex: Male

DRUGS (2)
  1. AMBISOME [Suspect]
     Active Substance: AMPHOTERICIN B
     Indication: CELLULITIS
     Route: 042
     Dates: start: 20131024, end: 20131025
  2. AMBISOME [Suspect]
     Active Substance: AMPHOTERICIN B
     Indication: ABSCESS

REACTIONS (1)
  - Off label use [Unknown]

NARRATIVE: CASE EVENT DATE: 20131024
